FAERS Safety Report 6194246-2 (Version None)
Quarter: 2009Q2

REPORT INFORMATION
  Report Type: 
  Country: None (occurrence: None)
  Receive Date: 20090513
  Receipt Date: 20090430
  Transmission Date: 20091009
  Serious: Yes (Hospitalization, Other)
  Sender: FDA-Public Use
  Company Number: 2009-01721

PATIENT
  Age: 58 Year
  Sex: Male
  Weight: 80 kg

DRUGS (10)
  1. VELCADE [Suspect]
     Indication: MULTIPLE MYELOMA
     Dosage: 2.4 MG, INTRAVENOUS; 2.2 MG, INTRAVENOUS
     Route: 042
     Dates: end: 20090326
  2. VELCADE [Suspect]
     Indication: MULTIPLE MYELOMA
     Dosage: 2.4 MG, INTRAVENOUS; 2.2 MG, INTRAVENOUS
     Route: 042
     Dates: start: 20081111
  3. DOXORUBICIN HCL [Suspect]
     Indication: MULTIPLE MYELOMA
     Dates: start: 20081111, end: 20090326
  4. AREDIA [Concomitant]
  5. ZOMETA [Concomitant]
  6. TRAMADOL HYDROHLORIDE [Concomitant]
  7. MORPHINE SULFATE [Concomitant]
  8. INSULIN (INSULIN) [Concomitant]
  9. LAXATIVES [Concomitant]
  10. MOTILIUM [Concomitant]

REACTIONS (3)
  - AUTONOMIC NEUROPATHY [None]
  - IMPAIRED GASTRIC EMPTYING [None]
  - NEUROPATHY PERIPHERAL [None]
